FAERS Safety Report 23956500 (Version 1)
Quarter: 2024Q2

REPORT INFORMATION
  Report Type: Spontaneous
  Country: NL (occurrence: NL)
  Receive Date: 20240610
  Receipt Date: 20240610
  Transmission Date: 20240716
  Serious: Yes (Hospitalization)
  Sender: FDA-Public Use
  Company Number: NL-Oxford Pharmaceuticals, LLC-2157939

PATIENT
  Age: 15 Year
  Sex: Female

DRUGS (3)
  1. BACLOFEN [Suspect]
     Active Substance: BACLOFEN
     Indication: Cerebral palsy
     Route: 042
  2. MORPHINE [Suspect]
     Active Substance: MORPHINE
     Route: 042
  3. ACETAMINOPHEN [Suspect]
     Active Substance: ACETAMINOPHEN
     Route: 042

REACTIONS (3)
  - Drug interaction [Unknown]
  - Respiratory depression [Recovered/Resolved]
  - Obstructive sleep apnoea syndrome [Unknown]
